FAERS Safety Report 25481974 (Version 1)
Quarter: 2025Q2

REPORT INFORMATION
  Report Type: Report from Study
  Country: ES (occurrence: ES)
  Receive Date: 20250626
  Receipt Date: 20250626
  Transmission Date: 20250716
  Serious: Yes (Hospitalization, Other)
  Sender: TEVA
  Company Number: ES-TEVA-VS-3344842

PATIENT
  Age: 84 Year
  Sex: Female

DRUGS (1)
  1. TERIPARATIDE [Suspect]
     Active Substance: TERIPARATIDE
     Indication: Osteoporosis
     Route: 065
     Dates: start: 20241114

REACTIONS (10)
  - Cerebrovascular accident [Recovered/Resolved]
  - Behaviour disorder [Not Recovered/Not Resolved]
  - Disorientation [Recovered/Resolved]
  - Decreased appetite [Not Recovered/Not Resolved]
  - Dysarthria [Recovered/Resolved]
  - Nausea [Not Recovered/Not Resolved]
  - Cognitive disorder [Not Recovered/Not Resolved]
  - Amnesia [Recovered/Resolved]
  - Weight decreased [Not Recovered/Not Resolved]
  - Vascular dementia [Not Recovered/Not Resolved]

NARRATIVE: CASE EVENT DATE: 20240101
